FAERS Safety Report 5590380-6 (Version None)
Quarter: 2008Q1

REPORT INFORMATION
  Report Type: 
  Country: None (occurrence: None)
  Receive Date: 20080114
  Receipt Date: 20080109
  Transmission Date: 20080703
  Serious: Yes (Other)
  Sender: FDA-Public Use
  Company Number: JP-BOEHRINGER INGELHEIM PHARMACEUTICALS, INC.-2006-BP-12118NB

PATIENT
  Age: 71 Year
  Sex: Male

DRUGS (1)
  1. MOBIC [Suspect]
     Indication: BACK PAIN
     Route: 048

REACTIONS (4)
  - ANAEMIA [None]
  - BLADDER CANCER [None]
  - ENTERITIS [None]
  - ILEUS [None]
